FAERS Safety Report 10431565 (Version 1)
Quarter: 2014Q3

REPORT INFORMATION
  Report Type: Spontaneous
  Country: FR (occurrence: FR)
  Receive Date: 20140904
  Receipt Date: 20140904
  Transmission Date: 20150326
  Serious: Yes (Hospitalization)
  Sender: FDA-Public Use
  Company Number: FR-PFIZER INC-2014241806

PATIENT
  Age: 44 Year
  Sex: Female

DRUGS (2)
  1. THYROZOL [Suspect]
     Active Substance: METHIMAZOLE
     Indication: BASEDOW^S DISEASE
     Dosage: 10 MG
     Route: 048
     Dates: start: 20140622, end: 20140628
  2. SOLU-MEDROL [Suspect]
     Active Substance: METHYLPREDNISOLONE SODIUM SUCCINATE
     Indication: BASEDOW^S DISEASE
     Dosage: 60 MG, 1X/DAY
     Route: 041
     Dates: start: 20140622, end: 20140627

REACTIONS (2)
  - Hepatitis [Recovered/Resolved]
  - Blood bilirubin increased [Recovered/Resolved]

NARRATIVE: CASE EVENT DATE: 20140628
